FAERS Safety Report 6419124-2 (Version None)
Quarter: 2009Q4

REPORT INFORMATION
  Report Type: 
  Country: None (occurrence: None)
  Receive Date: 20091029
  Receipt Date: 20091026
  Transmission Date: 20100525
  Serious: Yes (Other)
  Sender: FDA-Public Use
  Company Number: DE-ROCHE-657119

PATIENT
  Sex: Male

DRUGS (1)
  1. TAMIFLU [Suspect]
     Indication: INFLUENZA
     Dosage: ONLY ONCE
     Route: 048
     Dates: start: 20090805, end: 20090805

REACTIONS (2)
  - HEADACHE [None]
  - PARTIAL SEIZURES [None]
